FAERS Safety Report 8099061-0 (Version None)
Quarter: 2012Q1

REPORT INFORMATION
  Report Type: 
  Country: None (occurrence: None)
  Receive Date: 20120129
  Receipt Date: 20111024
  Transmission Date: 20120608
  Serious: Yes (Other)
  Sender: FDA-Public Use
  Company Number: US-ABBOTT-11P-163-0867955-00

PATIENT
  Age: 57 Year
  Sex: Female

DRUGS (3)
  1. HUMIRA [Suspect]
     Indication: PSORIATIC ARTHROPATHY
     Dates: start: 20101001, end: 20110301
  2. AZULFIDINE [Concomitant]
     Indication: PRODUCT USED FOR UNKNOWN INDICATION
     Dosage: DAILY DOSE: 3000MG
     Route: 048
  3. MELOXICAM [Concomitant]
     Indication: PAIN
     Route: 048

REACTIONS (3)
  - ARTHRALGIA [None]
  - PSORIASIS [None]
  - KNEE ARTHROPLASTY [None]
